FAERS Safety Report 5375622-4 (Version None)
Quarter: 2007Q2

REPORT INFORMATION
  Report Type: 
  Country: None (occurrence: None)
  Receive Date: 20070629
  Receipt Date: 20070618
  Transmission Date: 20071010
  Serious: Yes (Hospitalization, Other)
  Sender: FDA-Public Use
  Company Number: PT-PFIZER INC-2007051701

PATIENT
  Sex: Female

DRUGS (3)
  1. XALATAN [Suspect]
     Indication: INTRAOCULAR PRESSURE INCREASED
     Route: 047
     Dates: start: 20050101, end: 20070101
  2. COSOPT [Suspect]
     Indication: INTRAOCULAR PRESSURE INCREASED
  3. MULTIVITAMIN [Concomitant]

REACTIONS (4)
  - CORNEAL LESION [None]
  - EYE PAIN [None]
  - EYELID OPERATION [None]
  - IRIS HYPERPIGMENTATION [None]
